FAERS Safety Report 4479603-4 (Version None)
Quarter: 2004Q4

REPORT INFORMATION
  Report Type: 
  Country: None (occurrence: None)
  Receive Date: 20041020
  Receipt Date: 20040726
  Transmission Date: 20050328
  Serious: Yes (Other)
  Sender: FDA-Public Use
  Company Number: JP-BRISTOL-MYERS SQUIBB COMPANY-12653903

PATIENT
  Age: 70 Year
  Sex: Female

DRUGS (5)
  1. ENDOXAN [Suspect]
     Indication: BONE MARROW CONDITIONING REGIMEN
     Route: 041
     Dates: start: 20040622, end: 20040623
  2. UROMITEXAN [Suspect]
     Indication: PROPHYLACTIC CHEMOTHERAPY
     Route: 042
     Dates: start: 20040622, end: 20040623
  3. LASTET [Suspect]
     Indication: BONE MARROW CONDITIONING REGIMEN
     Route: 041
     Dates: start: 20040619, end: 20040621
  4. PARAPLATIN [Suspect]
     Indication: BONE MARROW CONDITIONING REGIMEN
     Route: 041
     Dates: start: 20040618, end: 20040621
  5. CYMERIN [Concomitant]
     Route: 041
     Dates: start: 20040617, end: 20040622

REACTIONS (10)
  - BLOOD POTASSIUM DECREASED [None]
  - CONVULSION [None]
  - INAPPROPRIATE ANTIDIURETIC HORMONE SECRETION [None]
  - INSOMNIA [None]
  - MUCOSAL INFLAMMATION [None]
  - NEUTROPENIA [None]
  - RHABDOMYOLYSIS [None]
  - SEPSIS [None]
  - SOMNOLENCE [None]
  - VOMITING [None]
